FAERS Safety Report 23296334 (Version 1)
Quarter: 2023Q4

REPORT INFORMATION
  Report Type: Spontaneous
  Country: GR (occurrence: GR)
  Receive Date: 20231214
  Receipt Date: 20231214
  Transmission Date: 20240110
  Serious: Yes (Other)
  Sender: FDA-Public Use
  Company Number: GR-002147023-NVSC2023GR261001

PATIENT

DRUGS (3)
  1. MIDOSTAURIN [Suspect]
     Active Substance: MIDOSTAURIN
     Indication: Foetal exposure during pregnancy
     Dosage: MATERNAL DOSE:UNK
     Route: 064
  2. CYTARABINE [Suspect]
     Active Substance: CYTARABINE
     Indication: Foetal exposure during pregnancy
     Dosage: MATERNAL DOSE:HIGH DOSE
     Route: 064
  3. GEMTUZUMAB OZOGAMICIN [Suspect]
     Active Substance: GEMTUZUMAB OZOGAMICIN
     Indication: Foetal exposure during pregnancy
     Dosage: MATERNAL DOSE:UNK
     Route: 064

REACTIONS (2)
  - Premature baby [Unknown]
  - Foetal exposure during pregnancy [Unknown]
